FAERS Safety Report 25328819 (Version 1)
Quarter: 2025Q2

REPORT INFORMATION
  Report Type: Spontaneous
  Country: CN (occurrence: CN)
  Receive Date: 20250519
  Receipt Date: 20250519
  Transmission Date: 20250716
  Serious: Yes (Life-Threatening, Hospitalization, Other)
  Sender: TAKEDA
  Company Number: CN-TAKEDA-2025TUS046211

PATIENT
  Age: 66 Year
  Sex: Female

DRUGS (6)
  1. FRUQUINTINIB [Suspect]
     Active Substance: FRUQUINTINIB
     Indication: Rectal cancer metastatic
  2. FRUQUINTINIB [Suspect]
     Active Substance: FRUQUINTINIB
     Dates: start: 20231211, end: 20241012
  3. FRUQUINTINIB [Suspect]
     Active Substance: FRUQUINTINIB
  4. FRUQUINTINIB [Suspect]
     Active Substance: FRUQUINTINIB
     Dates: start: 20250220, end: 20250220
  5. SINTILIMAB [Suspect]
     Active Substance: SINTILIMAB
     Indication: Rectal cancer metastatic
     Dosage: 200 MILLIGRAM, Q3WEEKS
     Dates: start: 20231211, end: 20241012
  6. SINTILIMAB [Suspect]
     Active Substance: SINTILIMAB
     Dates: start: 20250220, end: 20250220

REACTIONS (2)
  - Immune-mediated hepatitis [Unknown]
  - Immune-mediated pancreatitis [Unknown]

NARRATIVE: CASE EVENT DATE: 20241029
